FAERS Safety Report 9372908 (Version 4)
Quarter: 2013Q3

REPORT INFORMATION
  Report Type: Spontaneous
  Country: JP (occurrence: JP)
  Receive Date: 20130627
  Receipt Date: 20130927
  Transmission Date: 20140515
  Serious: Yes (Hospitalization)
  Sender: FDA-Public Use
  Company Number: JP-VERTEX PHARMACEUTICALS INC-2013-007460

PATIENT
  Age: 47 Year
  Sex: Male

DRUGS (13)
  1. TELAVIC [Suspect]
     Indication: CHRONIC HEPATITIS C
     Dosage: 2250 MG, QD
     Route: 048
     Dates: start: 20130509, end: 20130621
  2. REBETOL [Suspect]
     Indication: CHRONIC HEPATITIS C
     Dosage: 1000 MG, QD
     Route: 048
     Dates: start: 20130509, end: 20130621
  3. REBETOL [Suspect]
     Dosage: 600 MG, QD
     Route: 048
     Dates: start: 20130625
  4. PEGINTRON [Suspect]
     Indication: CHRONIC HEPATITIS C
     Dosage: 1.5 ?G/KG, QW
     Route: 058
     Dates: start: 20130508
  5. PEGINTRON [Suspect]
     Dosage: 100 ?G, QW
     Route: 058
     Dates: start: 20130626
  6. URSO [Concomitant]
     Dosage: 600 MG, QD
     Route: 048
     Dates: end: 20130527
  7. GLYCYRON [Concomitant]
     Dosage: 3 DF, QD
     Route: 048
     Dates: end: 20130527
  8. ASPIRIN [Concomitant]
     Dosage: 100 MG, QD
     Route: 048
  9. PARIET [Concomitant]
     Dosage: 10 MG, QD
     Route: 048
  10. UNISIA [Concomitant]
     Dosage: 1 DF, QD
     Route: 048
  11. NEO-MINOPHAGEN C [Concomitant]
     Dosage: 40 ML, QD
     Route: 041
     Dates: start: 20130510, end: 20130522
  12. LAC-B [Concomitant]
     Dosage: 3 G, QD
     Route: 048
     Dates: start: 20130605
  13. LOPEMIN [Concomitant]
     Dosage: UNK, PRN
     Route: 048
     Dates: start: 20130612, end: 20130619

REACTIONS (4)
  - Pancreatitis acute [Recovered/Resolved]
  - Pyrexia [Not Recovered/Not Resolved]
  - Insomnia [Not Recovered/Not Resolved]
  - Hyperuricaemia [Recovered/Resolved]
